FAERS Safety Report 18657663 (Version 3)
Quarter: 2022Q1

REPORT INFORMATION
  Report Type: Report from Study
  Country: CA (occurrence: CA)
  Receive Date: 20201223
  Receipt Date: 20220126
  Transmission Date: 20220424
  Serious: Yes (Death, Hospitalization, Other)
  Sender: FDA-Public Use
  Company Number: CA-NOVARTISPH-NVSC2020CA272674

PATIENT
  Age: 57 Year
  Sex: Female
  Weight: 73.469 kg

DRUGS (12)
  1. COSENTYX [Suspect]
     Active Substance: SECUKINUMAB
     Indication: Psoriasis
     Dosage: 150 MG, QMO
     Route: 065
     Dates: start: 20170729
  2. COSENTYX [Suspect]
     Active Substance: SECUKINUMAB
     Dosage: 150 MG, QMO
     Route: 065
     Dates: start: 20180626
  3. GUSELKUMAB [Concomitant]
     Active Substance: GUSELKUMAB
     Indication: Psoriasis
     Dosage: 100 MG, Q2MO (TREMFYA)
     Route: 065
     Dates: start: 20200602
  4. CYCLOSPORINE [Concomitant]
     Active Substance: CYCLOSPORINE
     Indication: Product used for unknown indication
     Dosage: UNK
     Route: 065
  5. METHOTREXATE [Concomitant]
     Active Substance: METHOTREXATE
     Indication: Psoriasis
     Dosage: UNK
     Route: 065
  6. PINAVERIUM BROMIDE [Concomitant]
     Active Substance: PINAVERIUM BROMIDE
     Indication: Product used for unknown indication
     Dosage: UNK
     Route: 065
  7. RABEPRAZOLE [Concomitant]
     Active Substance: RABEPRAZOLE
     Indication: Product used for unknown indication
     Dosage: UNK
     Route: 065
  8. PAROXETINE HYDROCHLORIDE [Concomitant]
     Active Substance: PAROXETINE HYDROCHLORIDE
     Indication: Product used for unknown indication
     Dosage: UNK
     Route: 065
  9. MORPHINE [Concomitant]
     Active Substance: MORPHINE
     Indication: Product used for unknown indication
     Dosage: UNK
     Route: 065
  10. KETOROLAC [Concomitant]
     Active Substance: KETOROLAC TROMETHAMINE
     Indication: Product used for unknown indication
     Dosage: UNK
     Route: 065
  11. BETAMETHASONE [Concomitant]
     Active Substance: BETAMETHASONE
     Indication: Product used for unknown indication
     Dosage: UNK
     Route: 065
  12. SUCRALFATE [Concomitant]
     Active Substance: SUCRALFATE
     Indication: Product used for unknown indication
     Dosage: UNK
     Route: 065

REACTIONS (19)
  - Lung adenocarcinoma [Fatal]
  - Dyspnoea [Unknown]
  - Bronchostenosis [Fatal]
  - Pulmonary hilum mass [Fatal]
  - Chest pain [Fatal]
  - Pulmonary mass [Fatal]
  - Haemoptysis [Unknown]
  - Metastases to bone [Not Recovered/Not Resolved]
  - Metastases to spine [Not Recovered/Not Resolved]
  - Back pain [Not Recovered/Not Resolved]
  - Abdominal pain [Not Recovered/Not Resolved]
  - K-ras gene mutation [Unknown]
  - Oesophagitis [Unknown]
  - Nausea [Unknown]
  - Vomiting [Unknown]
  - Hypophagia [Unknown]
  - Fatigue [Unknown]
  - Agitation [Unknown]
  - Pain [Unknown]

NARRATIVE: CASE EVENT DATE: 20200907
